FAERS Safety Report 17703127 (Version 1)
Quarter: 2020Q2

REPORT INFORMATION
  Report Type: Spontaneous
  Country: US (occurrence: US)
  Receive Date: 20200423
  Receipt Date: 20200423
  Transmission Date: 20200714
  Serious: Yes (Hospitalization)
  Sender: FDA-Public Use
  Company Number: None

PATIENT
  Age: 80 Year
  Sex: Male

DRUGS (1)
  1. ASTAGRAF XL [Suspect]
     Active Substance: TACROLIMUS
     Route: 048
     Dates: start: 20180101

REACTIONS (4)
  - Fall [None]
  - Pneumonia [None]
  - Traumatic haematoma [None]
  - Tremor [None]

NARRATIVE: CASE EVENT DATE: 20200301
